FAERS Safety Report 14273289 (Version 1)
Quarter: 2017Q4

REPORT INFORMATION
  Report Type: Spontaneous
  Country: AR (occurrence: AR)
  Receive Date: 20171211
  Receipt Date: 20171211
  Transmission Date: 20180321
  Serious: Yes (Death, Hospitalization)
  Sender: FDA-Public Use
  Company Number: AR-IMPAX LABORATORIES, INC-2017-IPXL-03573

PATIENT
  Age: 74 Year
  Sex: Male

DRUGS (4)
  1. MEPREDNISONE [Suspect]
     Active Substance: MEPREDNISONE
     Indication: MYASTHENIA GRAVIS
     Dosage: 20 MG, 1 /DAY
     Route: 065
  2. IMMUNE GLOBULIN [Concomitant]
     Active Substance: HUMAN IMMUNOGLOBULIN G
     Indication: MYASTHENIA GRAVIS
     Dosage: UNK
     Route: 042
  3. IMMUNE GLOBULIN [Concomitant]
     Active Substance: HUMAN IMMUNOGLOBULIN G
     Dosage: 2 G/KG
     Route: 042
  4. PYRIDOSTIGMINE BROMIDE. [Suspect]
     Active Substance: PYRIDOSTIGMINE BROMIDE
     Indication: MYASTHENIA GRAVIS
     Dosage: UNK
     Route: 065

REACTIONS (4)
  - Kaposi^s sarcoma [Unknown]
  - Lung adenocarcinoma [Unknown]
  - Chronic inflammatory demyelinating polyradiculoneuropathy [Unknown]
  - Death [Fatal]
